FAERS Safety Report 9364702 (Version 1)
Quarter: 2013Q2

REPORT INFORMATION
  Report Type: Spontaneous
  Country: US (occurrence: US)
  Receive Date: 20130624
  Receipt Date: 20130624
  Transmission Date: 20140414
  Serious: Yes (Life-Threatening, Hospitalization)
  Sender: FDA-Public Use
  Company Number: US-MYLANLABS-2013S1013202

PATIENT
  Age: 26 Year
  Sex: Male

DRUGS (4)
  1. NALOXONE [Suspect]
     Indication: DRUG DETOXIFICATION
     Dosage: 30MG
     Route: 065
  2. CLONIDINE [Suspect]
     Indication: DRUG DETOXIFICATION
     Dosage: 0.2MG
     Route: 065
  3. PROPOFOL [Suspect]
     Indication: DRUG DETOXIFICATION
     Dosage: 100MG
     Route: 065
  4. NITROUS OXIDE [Suspect]
     Indication: DRUG DETOXIFICATION
     Route: 065

REACTIONS (1)
  - Pulseless electrical activity [Recovered/Resolved]
